FAERS Safety Report 14405308 (Version 15)
Quarter: 2019Q3

REPORT INFORMATION
  Report Type: Report from Study
  Country: CA (occurrence: CA)
  Receive Date: 20180118
  Receipt Date: 20190729
  Transmission Date: 20191004
  Serious: Yes (Hospitalization, Other)
  Sender: FDA-Public Use
  Company Number: PHHY2015CA077126

PATIENT
  Age: 71 Year
  Sex: Male

DRUGS (8)
  1. SANDOSTATIN LAR DEPOT [Suspect]
     Active Substance: OCTREOTIDE ACETATE
     Dosage: 60 MG QMO
     Route: 030
     Dates: start: 20160302
  2. METFORMIN [Suspect]
     Active Substance: METFORMIN HYDROCHLORIDE
     Indication: PRODUCT USED FOR UNKNOWN INDICATION
     Route: 065
  3. SANDOSTATIN LAR DEPOT [Suspect]
     Active Substance: OCTREOTIDE ACETATE
     Dosage: 40 MG, QMO
     Route: 030
  4. SANDOSTATIN LAR DEPOT [Suspect]
     Active Substance: OCTREOTIDE ACETATE
     Dosage: 40 MG, QMO
     Route: 030
     Dates: start: 20151127
  5. SANDOSTATIN LAR DEPOT [Suspect]
     Active Substance: OCTREOTIDE ACETATE
     Indication: NEUROENDOCRINE CARCINOMA METASTATIC
     Dosage: 30 MG QMO
     Route: 030
     Dates: start: 20150623
  6. AMIODARONE [Concomitant]
     Active Substance: AMIODARONE
     Indication: PRODUCT USED FOR UNKNOWN INDICATION
     Route: 065
  7. ASPIRIN. [Concomitant]
     Active Substance: ASPIRIN
     Indication: PRODUCT USED FOR UNKNOWN INDICATION
     Route: 065
  8. SANDOSTATIN [Suspect]
     Active Substance: OCTREOTIDE ACETATE
     Indication: NEUROENDOCRINE CARCINOMA METASTATIC
     Dosage: 100 UG, TID
     Route: 058
     Dates: start: 20150609, end: 2015

REACTIONS (35)
  - Malignant neoplasm progression [Unknown]
  - Arthralgia [Recovering/Resolving]
  - Blood pressure diastolic decreased [Unknown]
  - Feeling hot [Unknown]
  - Feeling abnormal [Unknown]
  - Heart rate increased [Unknown]
  - Asthenia [Unknown]
  - Fatigue [Unknown]
  - Dizziness [Unknown]
  - Abdominal pain [Unknown]
  - Flushing [Unknown]
  - Hypokinesia [Unknown]
  - Ocular hyperaemia [Unknown]
  - Therapy non-responder [Unknown]
  - Neuroendocrine carcinoma metastatic [Unknown]
  - Musculoskeletal pain [Recovering/Resolving]
  - Confusional state [Unknown]
  - Heart rate decreased [Unknown]
  - Abdominal distension [Unknown]
  - Injection site bruising [Recovered/Resolved]
  - Angina pectoris [Unknown]
  - Pain in extremity [Recovering/Resolving]
  - Weight decreased [Unknown]
  - Fall [Unknown]
  - Generalised erythema [Unknown]
  - Head injury [Recovering/Resolving]
  - Haematoma [Recovering/Resolving]
  - Blood glucose fluctuation [Unknown]
  - Needle issue [Unknown]
  - Decreased interest [Unknown]
  - Decreased appetite [Unknown]
  - Gastrooesophageal reflux disease [Unknown]
  - Blood pressure systolic increased [Unknown]
  - Depression [Unknown]
  - Mood altered [Unknown]

NARRATIVE: CASE EVENT DATE: 20150623
